FAERS Safety Report 15779805 (Version 1)
Quarter: 2019Q1

REPORT INFORMATION
  Report Type: Spontaneous
  Country: US (occurrence: US)
  Receive Date: 20190102
  Receipt Date: 20190102
  Transmission Date: 20190417
  Serious: No
  Sender: FDA-Public Use
  Company Number: US-DRREDDYS-USA/USA/18/0099320

PATIENT
  Age: 73 Year
  Sex: Female
  Weight: 92.5 kg

DRUGS (1)
  1. NICOTINE. [Suspect]
     Active Substance: NICOTINE
     Indication: SMOKING CESSATION THERAPY
     Route: 062
     Dates: start: 20180510

REACTIONS (7)
  - Wrong technique in product usage process [Unknown]
  - Application site irritation [Unknown]
  - Overdose [Unknown]
  - Product adhesion issue [Unknown]
  - Application site acne [Unknown]
  - Product dose omission [Unknown]
  - Treatment noncompliance [Unknown]
